FAERS Safety Report 10010518 (Version 1)
Quarter: 2014Q1

REPORT INFORMATION
  Report Type: Spontaneous
  Country: US (occurrence: US)
  Receive Date: 20140314
  Receipt Date: 20140314
  Transmission Date: 20141002
  Serious: Yes (Other)
  Sender: FDA-Public Use
  Company Number: US-UCBSA-114296

PATIENT
  Age: 32 Year
  Sex: Female

DRUGS (5)
  1. CIMZIA [Suspect]
     Indication: CROHN^S DISEASE
     Dates: start: 201307, end: 2013
  2. CIMZIA [Suspect]
     Indication: CROHN^S DISEASE
     Dates: start: 201311, end: 2014
  3. ENTOCORT [Suspect]
     Dosage: 9 MG
     Dates: start: 20140227
  4. ASACOL [Concomitant]
     Dates: start: 201307
  5. PREDNISONE [Concomitant]
     Dates: start: 201307

REACTIONS (2)
  - Psychotic disorder [Unknown]
  - Crohn^s disease [Unknown]
